FAERS Safety Report 25910565 (Version 1)
Quarter: 2025Q4

REPORT INFORMATION
  Report Type: Spontaneous
  Country: AU (occurrence: AU)
  Receive Date: 20251013
  Receipt Date: 20251013
  Transmission Date: 20260118
  Serious: Yes (Other)
  Sender: BAUSCH AND LOMB
  Company Number: AU-BAUSCHBL-2025BNL029684

PATIENT
  Age: 63 Year
  Sex: Male

DRUGS (2)
  1. PREDNISOLONE [Suspect]
     Active Substance: PREDNISOLONE
     Indication: Product used for unknown indication
  2. AZATHIOPRINE [Suspect]
     Active Substance: AZATHIOPRINE
     Indication: Product used for unknown indication

REACTIONS (10)
  - Exophthalmos [Unknown]
  - Steroid diabetes [Unknown]
  - Condition aggravated [Unknown]
  - Blood glucose abnormal [Unknown]
  - Eyelid ptosis [Unknown]
  - Facial pain [Unknown]
  - Inflammatory marker increased [Unknown]
  - Osteoporosis [Unknown]
  - Weight increased [Unknown]
  - Off label use [Unknown]
